FAERS Safety Report 5786411-0 (Version None)
Quarter: 2008Q2

REPORT INFORMATION
  Report Type: 
  Country: None (occurrence: None)
  Receive Date: 20080624
  Receipt Date: 20080612
  Transmission Date: 20081010
  Serious: Yes (Other)
  Sender: FDA-Public Use
  Company Number: US-PFIZER INC-2008016171

PATIENT
  Sex: Female
  Weight: 72.6 kg

DRUGS (4)
  1. CHANTIX [Suspect]
     Indication: EX-SMOKER
     Dates: start: 20080201, end: 20080101
  2. WELLBUTRIN XL [Concomitant]
  3. ABILIFY [Concomitant]
  4. VALPROATE SODIUM [Concomitant]

REACTIONS (2)
  - NAUSEA [None]
  - RECTAL HAEMORRHAGE [None]
